FAERS Safety Report 5328390-6 (Version None)
Quarter: 2007Q2

REPORT INFORMATION
  Report Type: 
  Country: None (occurrence: None)
  Receive Date: 20070514
  Receipt Date: 20070430
  Transmission Date: 20071010
  Serious: Yes (Life-Threatening)
  Sender: FDA-Public Use
  Company Number: 2007EN000031

PATIENT
  Age: 67 Year
  Sex: Male

DRUGS (4)
  1. ABELECT (AMPHOTERICIN B LIPID COMPLEX) [Suspect]
     Indication: CANDIDA SEPSIS
     Dosage: 5 MG/KG; QD; IV
     Route: 042
     Dates: start: 20070407, end: 20070408
  2. GENTAMICIN [Concomitant]
  3. TEICOPLANIN [Concomitant]
  4. PARACETAMOL [Concomitant]

REACTIONS (4)
  - CHILLS [None]
  - CHOKING SENSATION [None]
  - HYPERTENSION [None]
  - TACHYCARDIA [None]
